FAERS Safety Report 14987524 (Version 1)
Quarter: 2018Q2

REPORT INFORMATION
  Report Type: Spontaneous
  Country: GB (occurrence: GB)
  Receive Date: 20180608
  Receipt Date: 20180608
  Transmission Date: 20180711
  Serious: Yes (Disabling)
  Sender: FDA-Public Use
  Company Number: GB-TEVA-2018-GB-901969

PATIENT
  Age: 79 Year
  Sex: Female

DRUGS (12)
  1. LANSOPRAZOLE. [Concomitant]
     Active Substance: LANSOPRAZOLE
     Dosage: 30 MILLIGRAM DAILY; MORNING
     Route: 065
  2. HYDROCORTISONE. [Concomitant]
     Active Substance: HYDROCORTISONE
     Dosage: 80 MILLIGRAM DAILY; SWITCHED AS PER RHEUMATOLOGY.
     Route: 042
  3. FLUCLOXACILLIN [Concomitant]
     Active Substance: FLUCLOXACILLIN
     Route: 065
  4. ALENDRONIC ACID [Concomitant]
     Active Substance: ALENDRONIC ACID
     Dosage: SUNDAY MORNING
     Route: 065
  5. PARACETAMOL [Concomitant]
     Active Substance: ACETAMINOPHEN
     Dosage: 4 GRAM DAILY;
     Route: 065
  6. BISOPROLOL [Concomitant]
     Active Substance: BISOPROLOL
     Dosage: 1.25 MILLIGRAM DAILY; MORNING
     Route: 065
  7. SODIUM FUSIDATE [Concomitant]
     Active Substance: FUSIDATE SODIUM
     Route: 065
  8. PREDNISOLONE. [Suspect]
     Active Substance: PREDNISOLONE
     Indication: ARTHRITIS BACTERIAL
     Dosage: 20 MILLIGRAM DAILY;
     Route: 048
  9. CETRABEN EMOLLIENT CREAM [Concomitant]
     Route: 065
  10. CALCICHEW D3 [Concomitant]
     Active Substance: CALCIUM\CHOLECALCIFEROL
     Dosage: 2 DOSAGE FORMS DAILY;
     Route: 065
  11. FUROSEMIDE. [Concomitant]
     Active Substance: FUROSEMIDE
     Dosage: MORNING. ACUTE.
     Route: 065
     Dates: start: 20180302
  12. OLANZAPINE. [Concomitant]
     Active Substance: OLANZAPINE
     Dosage: 2.5 MILLIGRAM DAILY; NIGHT.

REACTIONS (1)
  - Mania [Recovering/Resolving]
